FAERS Safety Report 7328950-7 (Version None)
Quarter: 2011Q1

REPORT INFORMATION
  Report Type: 
  Country: None (occurrence: None)
  Receive Date: 20110225
  Receipt Date: 20110225
  Transmission Date: 20110831
  Serious: Yes (Other)
  Sender: FDA-Public Use
  Company Number: None

PATIENT
  Age: 42 Year
  Sex: Female
  Weight: 65.7716 kg

DRUGS (2)
  1. SUBOXONE [Suspect]
     Indication: PAIN
     Dosage: 4 DAILY SL
     Route: 060
     Dates: start: 20110203, end: 20110221
  2. SUBOXONE [Suspect]
     Indication: DRUG DEPENDENCE
     Dosage: 4 DAILY SL
     Route: 060
     Dates: start: 20110203, end: 20110221

REACTIONS (6)
  - DYSPHAGIA [None]
  - STOMATITIS [None]
  - PRODUCT FORMULATION ISSUE [None]
  - TONGUE ULCERATION [None]
  - PAIN [None]
  - OEDEMA MOUTH [None]
